FAERS Safety Report 5421220-3 (Version None)
Quarter: 2007Q3

REPORT INFORMATION
  Report Type: 
  Country: None (occurrence: None)
  Receive Date: 20070821
  Receipt Date: 20070810
  Transmission Date: 20080115
  Serious: Yes (Hospitalization, Other)
  Sender: FDA-Public Use
  Company Number: CH-ELI_LILLY_AND_COMPANY-CH200708002390

PATIENT
  Age: 59 Year
  Sex: Female

DRUGS (4)
  1. HUMALOG MIX 75/25 [Suspect]
     Indication: TYPE 1 DIABETES MELLITUS
     Dosage: UNK UNK, DAILY (1/D)
     Route: 058
     Dates: end: 20070626
  2. DOXIUM [Concomitant]
     Dosage: UNK UNK, DAILY (1/D)
     Route: 048
  3. CANDESARTAN CILEXETIL [Concomitant]
     Dosage: UNK UNK, DAILY (1/D)
     Route: 048
  4. ASPIRIN [Concomitant]
     Dosage: UNK UNK, DAILY (1/D)
     Route: 048

REACTIONS (2)
  - HYPOGLYCAEMIA [None]
  - MEDICATION ERROR [None]
